FAERS Safety Report 8173644-1 (Version None)
Quarter: 2012Q1

REPORT INFORMATION
  Report Type: 
  Country: None (occurrence: None)
  Receive Date: 20120229
  Receipt Date: 20120224
  Transmission Date: 20120608
  Serious: Yes (Life-Threatening, Hospitalization)
  Sender: FDA-Public Use
  Company Number: US-BAYER-2011-118220

PATIENT
  Age: 37 Year
  Sex: Female
  Weight: 113.38 kg

DRUGS (19)
  1. ZANTAC [Concomitant]
     Indication: GASTROOESOPHAGEAL REFLUX DISEASE
     Dosage: UNK UNK, BID
     Dates: start: 20100122
  2. ATENOLOL [Concomitant]
     Dosage: UNK
     Dates: start: 20091111
  3. CYMBALTA [Concomitant]
     Indication: DEPRESSION
     Dosage: UNK
     Dates: start: 20100207
  4. OXYCODONE HCL AND ACETAMINOPHEN [Concomitant]
     Dosage: UNK
     Dates: start: 20100212
  5. MULTI-VITAMINS [Concomitant]
     Dosage: UNK
     Dates: start: 20100101
  6. NORTRIPTYLINE HCL [Concomitant]
  7. DARVOCET [Concomitant]
     Dosage: UNK
     Dates: start: 20091205
  8. HYDROCODONE BITARTRATE AND ACETAMINOPHEN [Concomitant]
     Dosage: UNK
     Dates: start: 20100207
  9. BUTALBITAL ACETAMINOPHEN AND CAFFEINE [Concomitant]
     Indication: HEADACHE
     Dosage: UNK
     Dates: start: 20010101
  10. VYTORIN [Concomitant]
     Dosage: UNK
     Dates: start: 20100129
  11. RANITIDINE [Concomitant]
  12. CLARITIN [Concomitant]
  13. OXYCODONE HCL [Concomitant]
  14. NAPROXEN (ALEVE) [Concomitant]
  15. CELEBREX [Concomitant]
     Dosage: UNK
     Dates: start: 20091205
  16. YAZ [Suspect]
     Indication: PREMENSTRUAL SYNDROME
     Dosage: UNK
     Route: 048
     Dates: start: 20060101, end: 20100201
  17. MECLIZINE [Concomitant]
     Dosage: UNK
     Dates: start: 20100126
  18. CYMBALTA [Concomitant]
     Indication: PAIN
     Dosage: UNK
     Dates: start: 20070101
  19. LORATADINE [Concomitant]
     Indication: MULTIPLE ALLERGIES
     Dosage: UNK
     Dates: start: 20100101

REACTIONS (4)
  - PULMONARY EMBOLISM [None]
  - INJURY [None]
  - THROMBOSIS [None]
  - DEEP VEIN THROMBOSIS [None]
